FAERS Safety Report 5587410-4 (Version None)
Quarter: 2007Q4

REPORT INFORMATION
  Report Type: 
  Country: None (occurrence: None)
  Receive Date: 20071207
  Receipt Date: 20070824
  Transmission Date: 20080405
  Serious: Yes (Other)
  Sender: FDA-Public Use
  Company Number: 2007065162

PATIENT
  Age: 65 Year
  Sex: Male
  Weight: 86.2 kg

DRUGS (5)
  1. VIAGRA [Suspect]
     Indication: ERECTILE DYSFUNCTION
     Dosage: 100 MG
  2. ANTIHYPERTENSIVES (ANTIHYPERTENSIVES) [Concomitant]
  3. AVAPRO [Concomitant]
  4. LIPITOR [Concomitant]
  5. WARFARIN SODIUM [Concomitant]

REACTIONS (3)
  - BLOOD SODIUM DECREASED [None]
  - DRUG INTERACTION [None]
  - SYNCOPE [None]
